FAERS Safety Report 7732498-5 (Version None)
Quarter: 2011Q3

REPORT INFORMATION
  Report Type: 
  Country: None (occurrence: None)
  Receive Date: 20110906
  Receipt Date: 20110825
  Transmission Date: 20111222
  Serious: Yes (Hospitalization, Other)
  Sender: FDA-Public Use
  Company Number: US-ASTRAZENECA-2011SE31436

PATIENT
  Age: 77 Year
  Sex: Female
  Weight: 82 kg

DRUGS (18)
  1. METFORMIN HCL [Concomitant]
  2. LISINOPRIL [Concomitant]
  3. ISOSORBIDE DINITRATE [Concomitant]
  4. VYTORIN [Concomitant]
     Dosage: 10/40 DAILY
  5. IMIPRAMINE [Concomitant]
  6. DARVOCET-N 50 [Concomitant]
     Dosage: AS REQUIRED
  7. NEXIUM [Suspect]
     Route: 048
     Dates: start: 20070101
  8. COREG [Concomitant]
  9. PLAVIX [Concomitant]
  10. TRICOR [Concomitant]
  11. FISH OIL [Concomitant]
     Route: 048
  12. KAYEXALATE [Concomitant]
     Route: 048
  13. NEXIUM [Suspect]
     Route: 048
  14. CRESTOR [Suspect]
     Route: 048
  15. DIOVAN [Concomitant]
  16. ACTOS [Concomitant]
  17. AVANDIA [Concomitant]
  18. LASIX [Concomitant]

REACTIONS (22)
  - SICK SINUS SYNDROME [None]
  - JOINT INJURY [None]
  - OSTEOARTHRITIS [None]
  - CARDIAC DISORDER [None]
  - FEMUR FRACTURE [None]
  - ARTHRITIS [None]
  - HYPERCHOLESTEROLAEMIA [None]
  - DYSLIPIDAEMIA [None]
  - CARDIAC FAILURE CONGESTIVE [None]
  - CHEST PAIN [None]
  - GASTROOESOPHAGEAL REFLUX DISEASE [None]
  - HYPERKALAEMIA [None]
  - BRONCHITIS [None]
  - DYSPNOEA [None]
  - MALAISE [None]
  - DIABETES MELLITUS [None]
  - COUGH [None]
  - CORONARY ARTERY DISEASE [None]
  - SYNCOPE [None]
  - POST PROCEDURAL COMPLICATION [None]
  - FALL [None]
  - MUSCULOSKELETAL CHEST PAIN [None]
